FAERS Safety Report 24097704 (Version 1)
Quarter: 2024Q3

REPORT INFORMATION
  Report Type: Spontaneous
  Country: GB (occurrence: GB)
  Receive Date: 20240716
  Receipt Date: 20240716
  Transmission Date: 20241017
  Serious: Yes (Other)
  Sender: CURRAX PHARMACEUTICALS
  Company Number: None

PATIENT
  Age: 39 Year
  Sex: Female
  Weight: 82 kg

DRUGS (3)
  1. BUPROPION HYDROCHLORIDE\NALTREXONE HYDROCHLORIDE [Suspect]
     Active Substance: BUPROPION HYDROCHLORIDE\NALTREXONE HYDROCHLORIDE
     Indication: Weight decreased
     Dosage: STRENGTH: 8/90 MG, ONCE A DAY
     Route: 065
     Dates: start: 20240510, end: 20240515
  2. LEVOTHYROXINE [Concomitant]
     Active Substance: LEVOTHYROXINE\LEVOTHYROXINE SODIUM
     Indication: Autoimmune hypothyroidism
     Dosage: UNK
     Dates: start: 202211
  3. CINNARIZINE [Concomitant]
     Active Substance: CINNARIZINE
     Indication: Motion sickness
     Dosage: UNK
     Dates: start: 20240510, end: 20240512

REACTIONS (13)
  - Anger [Recovering/Resolving]
  - Tachyphrenia [Recovered/Resolved]
  - Hypoacusis [Not Recovered/Not Resolved]
  - Eye pain [Recovering/Resolving]
  - Chest pain [Recovered/Resolved]
  - Vision blurred [Recovered/Resolved]
  - Depression [Recovering/Resolving]
  - Hypertension [Not Recovered/Not Resolved]
  - Palpitations [Recovered/Resolved]
  - Tinnitus [Recovered/Resolved]
  - Thirst [Recovering/Resolving]
  - Presyncope [Recovering/Resolving]
  - Tension headache [Recovering/Resolving]

NARRATIVE: CASE EVENT DATE: 20240510
